FAERS Safety Report 10409918 (Version 1)
Quarter: 2014Q3

REPORT INFORMATION
  Report Type: Spontaneous
  Country: US (occurrence: US)
  Receive Date: 20140826
  Receipt Date: 20140826
  Transmission Date: 20150326
  Serious: No
  Sender: FDA-Public Use
  Company Number: US-ASTRAZENECA-2014SE61142

PATIENT
  Age: 61 Year
  Sex: Female
  Weight: 70.8 kg

DRUGS (2)
  1. GLIPIZIDE. [Suspect]
     Active Substance: GLIPIZIDE
     Indication: GLUCOSE TOLERANCE IMPAIRED
     Route: 065
     Dates: start: 2007
  2. PRILOSEC [Suspect]
     Active Substance: OMEPRAZOLE MAGNESIUM
     Indication: GASTROOESOPHAGEAL REFLUX DISEASE
     Route: 048

REACTIONS (3)
  - Adverse drug reaction [Unknown]
  - Drug hypersensitivity [Unknown]
  - Malaise [Unknown]
